FAERS Safety Report 12627581 (Version 1)
Quarter: 2016Q3

REPORT INFORMATION
  Report Type: Report from Study
  Country: GB (occurrence: GB)
  Receive Date: 20160805
  Receipt Date: 20160805
  Transmission Date: 20161109
  Serious: Yes (Other)
  Sender: FDA-Public Use
  Company Number: GB-ABBVIE-16K-167-1692658-00

PATIENT

DRUGS (3)
  1. HUMIRA [Suspect]
     Active Substance: ADALIMUMAB
     Route: 058
  2. HUMIRA [Suspect]
     Active Substance: ADALIMUMAB
     Indication: CROHN^S DISEASE
     Route: 058
  3. METHOTREXATE. [Concomitant]
     Active Substance: METHOTREXATE
     Indication: CROHN^S DISEASE
     Dates: start: 2014

REACTIONS (9)
  - Soft tissue infection [Unknown]
  - Pneumonia [Unknown]
  - Urinary tract infection [Unknown]
  - Mental disorder [Unknown]
  - Varicella [Unknown]
  - Night sweats [Unknown]
  - Immunodeficiency [Unknown]
  - Gastroenteritis norovirus [Unknown]
  - Infectious mononucleosis [Unknown]
